FAERS Safety Report 25330503 (Version 1)
Quarter: 2025Q2

REPORT INFORMATION
  Report Type: Spontaneous
  Country: US (occurrence: None)
  Receive Date: 20250516
  Receipt Date: 20250516
  Transmission Date: 20250716
  Serious: No
  Sender: FDA-CTU
  Company Number: None

PATIENT
  Age: 80 Year
  Sex: Female
  Weight: 56.7 kg

DRUGS (1)
  1. MUPIROCIN [Suspect]
     Active Substance: MUPIROCIN
     Indication: Wound treatment
     Dates: start: 20250513, end: 20250514

REACTIONS (3)
  - Ear pruritus [None]
  - Application site pruritus [None]
  - Procedural site reaction [None]

NARRATIVE: CASE EVENT DATE: 20250513
